FAERS Safety Report 21018783 (Version 1)
Quarter: 2022Q2

REPORT INFORMATION
  Report Type: Spontaneous
  Country: US (occurrence: None)
  Receive Date: 20220628
  Receipt Date: 20220628
  Transmission Date: 20220720
  Serious: No
  Sender: FDA-Public Use
  Company Number: None

PATIENT
  Sex: Female

DRUGS (1)
  1. EVEROLIMUS [Suspect]
     Active Substance: EVEROLIMUS
     Indication: Gastric cancer
     Dosage: 10MG ONCE DAILY ORAL
     Route: 048

REACTIONS (9)
  - Asthenia [None]
  - Nausea [None]
  - Vomiting [None]
  - Abdominal pain upper [None]
  - Syncope [None]
  - Hypotension [None]
  - Dehydration [None]
  - Blood potassium decreased [None]
  - Hepatic enzyme increased [None]
